FAERS Safety Report 20467998 (Version 1)
Quarter: 2022Q1

REPORT INFORMATION
  Report Type: Spontaneous
  Country: DE (occurrence: DE)
  Receive Date: 20220214
  Receipt Date: 20220214
  Transmission Date: 20220423
  Serious: No
  Sender: FDA-Public Use
  Company Number: DE-ALKEM LABORATORIES LIMITED-DE-ALKEM-2021-06208

PATIENT
  Age: 52 Year
  Sex: Male
  Weight: 80 kg

DRUGS (5)
  1. EZETIMIBE [Suspect]
     Active Substance: EZETIMIBE
     Indication: Product used for unknown indication
     Dosage: 10 MILLIGRAM, QD
     Route: 048
     Dates: start: 202007
  2. ASS-Ratiopharm [Acetylsalicylic  Acid] [Concomitant]
     Indication: Product used for unknown indication
     Dosage: 100 MILLIGRAM, QD
     Route: 065
     Dates: start: 201307
  3. Atorvastatin Abz [Atorvastatin] [Concomitant]
     Indication: Product used for unknown indication
     Dosage: 40 MILLIGRAM, QD
     Route: 065
     Dates: start: 201307
  4. MetoHEXAL Succ [Metoprolol Succinate] [Concomitant]
     Indication: Product used for unknown indication
     Dosage: 47.5 MILLIGRAM, QD
     Route: 065
     Dates: start: 201307
  5. Ramilich [Ramipril] [Concomitant]
     Indication: Product used for unknown indication
     Dosage: 2.5 MILLIGRAM, QD
     Route: 065
     Dates: start: 201307

REACTIONS (4)
  - Headache [Not Recovered/Not Resolved]
  - Head discomfort [Not Recovered/Not Resolved]
  - Rash [Not Recovered/Not Resolved]
  - Eye inflammation [Not Recovered/Not Resolved]

NARRATIVE: CASE EVENT DATE: 20200701
